FAERS Safety Report 23070290 (Version 2)
Quarter: 2023Q4

REPORT INFORMATION
  Report Type: Report from Study
  Country: DE (occurrence: DE)
  Receive Date: 20231016
  Receipt Date: 20231121
  Transmission Date: 20240109
  Serious: Yes (Life-Threatening, Other)
  Sender: FDA-Public Use
  Company Number: DE-Merck Healthcare KGaA-2023480780

PATIENT
  Age: 48 Year
  Sex: Female

DRUGS (2)
  1. MAVENCLAD [Suspect]
     Active Substance: CLADRIBINE
     Indication: Multiple sclerosis
     Dosage: YEAR ONE CYCLE ONE THERAPY
     Route: 048
     Dates: start: 202308
  2. MAVENCLAD [Suspect]
     Active Substance: CLADRIBINE
     Dosage: YEAR ONE CYCLE TWO THERAPY
     Route: 048
     Dates: start: 20230912

REACTIONS (6)
  - Aspartate aminotransferase increased [Not Recovered/Not Resolved]
  - Hepatic failure [Unknown]
  - Blood bilirubin increased [Not Recovered/Not Resolved]
  - Abdominal pain upper [Unknown]
  - Alanine aminotransferase increased [Not Recovered/Not Resolved]
  - Gamma-glutamyltransferase increased [Not Recovered/Not Resolved]

NARRATIVE: CASE EVENT DATE: 20231011
